FAERS Safety Report 20938156 (Version 1)
Quarter: 2022Q2

REPORT INFORMATION
  Report Type: Spontaneous
  Country: US (occurrence: None)
  Receive Date: 20220608
  Receipt Date: 20220608
  Transmission Date: 20220721
  Serious: Yes (Hospitalization)
  Sender: FDA-Public Use
  Company Number: None

PATIENT
  Age: 58 Year
  Sex: Female

DRUGS (9)
  1. HUMIRA [Suspect]
     Active Substance: ADALIMUMAB
     Indication: Psoriasis
     Route: 058
  2. BUDESONIDE TAB [Concomitant]
  3. CLOBETASOL SOL [Concomitant]
  4. CYCLOBENZAPRINE HYDROCHLORIDE [Concomitant]
     Active Substance: CYCLOBENZAPRINE HYDROCHLORIDE
  5. ESZOPICOLONE TAB [Concomitant]
  6. GABAPENTIN [Concomitant]
  7. HUMIRA [Concomitant]
     Active Substance: ADALIMUMAB
  8. PREDNISONE [Concomitant]
  9. PREVALITE POW [Concomitant]

REACTIONS (2)
  - Kidney infection [None]
  - Nephrolithiasis [None]

NARRATIVE: CASE EVENT DATE: 20220530
